FAERS Safety Report 9792555 (Version 2)
Quarter: 2014Q1

REPORT INFORMATION
  Report Type: Spontaneous
  Country: SE (occurrence: SE)
  Receive Date: 20140102
  Receipt Date: 20140313
  Transmission Date: 20141002
  Serious: Yes (Disabling)
  Sender: FDA-Public Use
  Company Number: SE-JNJFOC-20131217072

PATIENT
  Age: 47 Year
  Sex: Male
  Weight: 110 kg

DRUGS (3)
  1. SIMPONI [Suspect]
     Indication: ANKYLOSING SPONDYLITIS
     Route: 058
     Dates: start: 201304
  2. ASACOL [Suspect]
     Indication: COLITIS ULCERATIVE
     Route: 048
     Dates: start: 2000
  3. ENALAPRIL MALEATE [Suspect]
     Indication: HYPERTENSION
     Route: 048

REACTIONS (9)
  - Dizziness [Recovered/Resolved with Sequelae]
  - Nausea [Recovered/Resolved with Sequelae]
  - Diarrhoea [Recovered/Resolved with Sequelae]
  - Rash [Recovered/Resolved with Sequelae]
  - Initial insomnia [Recovered/Resolved with Sequelae]
  - Vision blurred [Recovered/Resolved with Sequelae]
  - Depression [Recovered/Resolved with Sequelae]
  - Asthenia [Recovered/Resolved with Sequelae]
  - Abdominal pain [Recovered/Resolved with Sequelae]
